FAERS Safety Report 8863750 (Version 1)
Quarter: 2012Q4

REPORT INFORMATION
  Report Type: 
  Country: US (occurrence: US)
  Receive Date: 20121024
  Receipt Date: 20121024
  Transmission Date: 20130627
  Serious: No
  Sender: FDA-Public Use
  Company Number: US-AMGEN-USASP2011063678

PATIENT
  Age: 57 Year
  Sex: Female

DRUGS (1)
  1. ENBREL [Suspect]
     Indication: RHEUMATOID ARTHRITIS
     Dates: start: 20110225, end: 20110830

REACTIONS (4)
  - Dyspnoea [Recovered/Resolved]
  - Bone pain [Recovered/Resolved]
  - Rash generalised [Recovered/Resolved]
  - Influenza [Not Recovered/Not Resolved]
